FAERS Safety Report 8812605 (Version 2)
Quarter: 2012Q4

REPORT INFORMATION
  Report Type: 
  Country: JP (occurrence: JP)
  Receive Date: 20120927
  Receipt Date: 20121004
  Transmission Date: 20130627
  Serious: Yes (Hospitalization)
  Sender: FDA-Public Use
  Company Number: JP-PFIZER INC-2012239021

PATIENT
  Age: 65 Year
  Sex: Female

DRUGS (5)
  1. CELECOX [Suspect]
     Dosage: 200 mg daily
     Route: 048
     Dates: start: 20120818, end: 20120829
  2. GASTER [Concomitant]
     Dosage: 20 mg, UNK
     Dates: start: 20120819
  3. MERISLON [Concomitant]
     Dosage: Unk
     Dates: start: 20120818
  4. METHYLCOBAL [Concomitant]
     Dosage: Unk
     Route: 048
     Dates: start: 20120818
  5. PREDONINE [Concomitant]
     Dosage: Unk
     Dates: start: 20120819

REACTIONS (1)
  - Drug eruption [Recovered/Resolved]
